FAERS Safety Report 6536645-2 (Version None)
Quarter: 2010Q1

REPORT INFORMATION
  Report Type: 
  Country: None (occurrence: None)
  Receive Date: 20100113
  Receipt Date: 20100106
  Transmission Date: 20100710
  Serious: Yes (Hospitalization)
  Sender: FDA-Public Use
  Company Number: US-JNJFOC-20100103178

PATIENT
  Sex: Male
  Weight: 39.4 kg

DRUGS (9)
  1. INFLIXIMAB [Suspect]
     Indication: INFLAMMATORY BOWEL DISEASE
  2. HUMIRA [Concomitant]
  3. ACETAMINOPHEN [Concomitant]
  4. PREDNISONE [Concomitant]
     Indication: INFLAMMATORY BOWEL DISEASE
  5. ANTIBIOTICS [Concomitant]
     Indication: INFLAMMATORY BOWEL DISEASE
  6. FERROUS SULFATE TAB [Concomitant]
  7. LANSOPRAZOLE [Concomitant]
  8. HYOSCYAMINE [Concomitant]
  9. AMLODIPINE [Concomitant]

REACTIONS (2)
  - RASH [None]
  - VIRAL UPPER RESPIRATORY TRACT INFECTION [None]
